FAERS Safety Report 23481647 (Version 1)
Quarter: 2024Q1

REPORT INFORMATION
  Report Type: Spontaneous
  Country: US (occurrence: None)
  Receive Date: 20240203
  Receipt Date: 20240203
  Transmission Date: 20240410
  Serious: Yes (Hospitalization)
  Sender: FDA-Public Use
  Company Number: None

PATIENT
  Age: 42 Year
  Sex: Male
  Weight: 78.9 kg

DRUGS (2)
  1. XELODA [Suspect]
     Active Substance: CAPECITABINE
     Dates: end: 20240122
  2. ELOXATIN [Suspect]
     Active Substance: OXALIPLATIN
     Dates: end: 20240109

REACTIONS (4)
  - Rectal haemorrhage [None]
  - Haemoglobin decreased [None]
  - Intestinal mass [None]
  - Large intestinal ulcer [None]

NARRATIVE: CASE EVENT DATE: 20240128
